FAERS Safety Report 8473152-4 (Version None)
Quarter: 2012Q2

REPORT INFORMATION
  Report Type: 
  Country: None (occurrence: None)
  Receive Date: 20120627
  Receipt Date: 20120622
  Transmission Date: 20120825
  Serious: Yes (Other)
  Sender: FDA-Public Use
  Company Number: US-PFIZER INC-2012123759

PATIENT
  Sex: Female

DRUGS (2)
  1. GENOTROPIN [Suspect]
     Indication: GROWTH HORMONE DEFICIENCY
     Dosage: 0.6MG, EVERY DAY
     Route: 058
     Dates: end: 20120101
  2. GENOTROPIN [Suspect]
     Dosage: UNK
     Dates: start: 20120410

REACTIONS (5)
  - EAR PAIN [None]
  - OTORRHOEA [None]
  - EAR INFECTION [None]
  - PYREXIA [None]
  - OROPHARYNGEAL PAIN [None]
